FAERS Safety Report 9091181 (Version 1)
Quarter: 2013Q1

REPORT INFORMATION
  Report Type: Spontaneous
  Country: US (occurrence: US)
  Receive Date: 20130131
  Receipt Date: 20130131
  Transmission Date: 20140127
  Serious: Yes (Hospitalization, Other)
  Sender: FDA-Public Use
  Company Number: PHEH2012US022654

PATIENT
  Age: 49 Year
  Sex: Female
  Weight: 75.6 kg

DRUGS (1)
  1. CLOZARIL [Suspect]
     Dosage: UNK UKN, UNK

REACTIONS (5)
  - Lobar pneumonia [Recovered/Resolved]
  - Asthma [Recovered/Resolved]
  - Non-cardiac chest pain [Recovered/Resolved]
  - Neutrophil count increased [Unknown]
  - White blood cell count increased [Unknown]
